FAERS Safety Report 16849201 (Version 1)
Quarter: 2019Q3

REPORT INFORMATION
  Report Type: Spontaneous
  Country: US (occurrence: US)
  Receive Date: 20190802
  Receipt Date: 20190802
  Transmission Date: 20191005
  Serious: No
  Sender: FDA-Public Use
  Company Number: None

PATIENT
  Age: 27 Year
  Sex: Female

DRUGS (4)
  1. ENBREL [Suspect]
     Active Substance: ETANERCEPT
     Indication: PRODUCT USED FOR UNKNOWN INDICATION
     Route: 058
     Dates: start: 20190509
  2. ALBUTEROL. [Concomitant]
     Active Substance: ALBUTEROL
  3. TYLENOL [Concomitant]
     Active Substance: ACETAMINOPHEN
  4. PRE-NATAL FORMULA [Concomitant]

REACTIONS (4)
  - Pregnancy [None]
  - Maternal exposure timing unspecified [None]
  - Maternal drugs affecting foetus [None]
  - Therapy cessation [None]

NARRATIVE: CASE EVENT DATE: 20190731
